FAERS Safety Report 9026504 (Version 2)
Quarter: 2013Q1

REPORT INFORMATION
  Report Type: Spontaneous
  Country: GB (occurrence: None)
  Receive Date: 20130109
  Receipt Date: 20130117
  Transmission Date: 20140127
  Serious: Yes (Hospitalization)
  Sender: FDA-Public Use
  Company Number: 2012-23356

PATIENT
  Age: 79 Year
  Sex: Male

DRUGS (12)
  1. IBUPROFEN (IBUPROFEN) [Suspect]
     Indication: PRODUCT USED FOR UNKNOWN INDICATION
     Route: 048
     Dates: start: 2001, end: 20040311
  2. ATORVASTATIN (ATORVASTATIN) [Suspect]
     Indication: HYPERCHOLESTEROLAEMIA
     Route: 048
     Dates: start: 20031101, end: 20040311
  3. AVANDIA [Suspect]
     Indication: TYPE 2 DIABETES MELLITUS
     Route: 048
     Dates: start: 200210, end: 20040316
  4. LEVOTHYROXINE SODIUM (LEVOTHYROXINE SODIUM) [Concomitant]
  5. GLICLAZIDE (GLICLAZIDE) [Concomitant]
  6. METFORMIN (METFORMIN) [Concomitant]
  7. RAMIPRIL (RAMIPRIL) [Concomitant]
  8. OXYBUTYNIN (OXYBUTYNIN) [Concomitant]
  9. CO-CODAMOL (CODEINE PHOSPHATE, PARACETAMOL) [Concomitant]
  10. SILDENAFIL (SILDENAFIL) [Concomitant]
  11. AMOXICILLIN (AMOXICILLIN) [Concomitant]
  12. DOXYCYCLINE (DOXYCYCLINE) [Concomitant]

REACTIONS (8)
  - Cholelithiasis [None]
  - Jaundice [None]
  - Liver function test abnormal [None]
  - Blood bilirubin increased [None]
  - Aspartate aminotransferase increased [None]
  - Alanine aminotransferase increased [None]
  - Blood alkaline phosphatase increased [None]
  - Gamma-glutamyltransferase increased [None]
